FAERS Safety Report 18676041 (Version 1)
Quarter: 2020Q4

REPORT INFORMATION
  Report Type: Spontaneous
  Country: US (occurrence: US)
  Receive Date: 20201228
  Receipt Date: 20201228
  Transmission Date: 20210114
  Serious: No
  Sender: FDA-Public Use
  Company Number: None

PATIENT
  Sex: Female

DRUGS (1)
  1. CAPECITABINE 500MG NOVADOZ PHARMACEUTICALS [Suspect]
     Active Substance: CAPECITABINE
     Indication: COLON CANCER
     Dosage: ?          OTHER FREQUENCY:3AM, 2PM;?
     Route: 048
     Dates: start: 202009

REACTIONS (7)
  - Dehydration [None]
  - Diarrhoea [None]
  - Muscle spasms [None]
  - Neuropathy peripheral [None]
  - Nausea [None]
  - Palmar-plantar erythrodysaesthesia syndrome [None]
  - Faeces soft [None]
